FAERS Safety Report 15413146 (Version 5)
Quarter: 2018Q4

REPORT INFORMATION
  Report Type: Report from Study
  Country: US (occurrence: US)
  Receive Date: 20180921
  Receipt Date: 20181211
  Transmission Date: 20190204
  Serious: Yes (Death, Other)
  Sender: FDA-Public Use
  Company Number: US-GILEAD-2018-0355598

PATIENT
  Age: 69 Year
  Sex: Female

DRUGS (9)
  1. METOLAZONE. [Concomitant]
     Active Substance: METOLAZONE
  2. ALLOPURINOL. [Concomitant]
     Active Substance: ALLOPURINOL
  3. TORSEMIDE. [Concomitant]
     Active Substance: TORSEMIDE
  4. XANAX [Concomitant]
     Active Substance: ALPRAZOLAM
  5. KCL [Concomitant]
     Active Substance: POTASSIUM CHLORIDE
  6. ADCIRCA [Concomitant]
     Active Substance: TADALAFIL
     Dosage: 40 MG
     Dates: start: 20180217
  7. SPIRONOLACTONE. [Concomitant]
     Active Substance: SPIRONOLACTONE
  8. LISINOPRIL. [Concomitant]
     Active Substance: LISINOPRIL
  9. AMBRISENTAN [Suspect]
     Active Substance: AMBRISENTAN
     Indication: PULMONARY ARTERIAL HYPERTENSION
     Dosage: 5 MG, QD
     Route: 065
     Dates: start: 20151205

REACTIONS (5)
  - Memory impairment [Unknown]
  - Malignant melanoma [Not Recovered/Not Resolved]
  - Pain [Not Recovered/Not Resolved]
  - Intentional dose omission [Recovered/Resolved]
  - Pulmonary embolism [Fatal]

NARRATIVE: CASE EVENT DATE: 20181005
